FAERS Safety Report 5919473-8 (Version None)
Quarter: 2008Q4

REPORT INFORMATION
  Report Type: 
  Country: None (occurrence: None)
  Receive Date: 20081015
  Receipt Date: 20081006
  Transmission Date: 20090506
  Serious: Yes (Other)
  Sender: FDA-Public Use
  Company Number: US-WYE-H06296608

PATIENT
  Age: 16 Year
  Sex: Female
  Weight: 47.67 kg

DRUGS (3)
  1. ROBITUSSIN DM [Suspect]
     Indication: DRUG ABUSE
     Dosage: UNKNOWN
     Route: 048
     Dates: start: 20080501, end: 20080909
  2. CORICIDIN [Suspect]
     Indication: DRUG ABUSE
     Dosage: UNKNOWN
     Route: 048
     Dates: start: 20080501, end: 20080909
  3. ROBITUSSIN COUGH AND COLD LONG ACTING [Suspect]
     Indication: DRUG ABUSE
     Dosage: UNKNOWN
     Route: 048
     Dates: start: 20080501, end: 20080909

REACTIONS (4)
  - DEPRESSION [None]
  - DRUG ABUSE [None]
  - INTENTIONAL OVERDOSE [None]
  - SOMNOLENCE [None]
